FAERS Safety Report 21440406 (Version 1)
Quarter: 2022Q4

REPORT INFORMATION
  Report Type: Spontaneous
  Country: US (occurrence: US)
  Receive Date: 20221011
  Receipt Date: 20221011
  Transmission Date: 20230113
  Serious: Yes (Other)
  Sender: FDA-Public Use
  Company Number: US-AMNEAL PHARMACEUTICALS-2022-AMRX-02663

PATIENT
  Age: 23 Year
  Sex: Male

DRUGS (3)
  1. LIORESAL [Suspect]
     Active Substance: BACLOFEN
     Indication: Muscle spasticity
     Dosage: 200 ?G, \DAY
     Route: 037
  2. LIORESAL [Suspect]
     Active Substance: BACLOFEN
     Dosage: UNK ?G, \DAY (INCREASED BY 10% LAST WEEK RELATIVE TO 17-FEB-2022)
     Route: 037
     Dates: start: 202202
  3. LIORESAL [Suspect]
     Active Substance: BACLOFEN
     Dosage: 831 ?G, \DAY, FLEX MODE
     Route: 037
     Dates: start: 202202

REACTIONS (2)
  - Drug withdrawal syndrome [Recovered/Resolved]
  - Device dislocation [Recovered/Resolved]

NARRATIVE: CASE EVENT DATE: 20220127
